FAERS Safety Report 11800048 (Version 2)
Quarter: 2016Q1

REPORT INFORMATION
  Report Type: Spontaneous
  Country: DE (occurrence: DE)
  Receive Date: 20151203
  Receipt Date: 20160303
  Transmission Date: 20160525
  Serious: Yes (Other)
  Sender: FDA-Public Use
  Company Number: DE-RARE DISEASE THERAPEUTICS, INC.-1045036

PATIENT
  Sex: Female

DRUGS (3)
  1. MERCAPTOPURINE. [Suspect]
     Active Substance: MERCAPTOPURINE
     Indication: AUTOIMMUNE HEPATITIS
  2. PREDNISONE. [Suspect]
     Active Substance: PREDNISONE
  3. AZATHIOPRINE. [Suspect]
     Active Substance: AZATHIOPRINE

REACTIONS (3)
  - Uterine cancer [Unknown]
  - Metastases to peritoneum [Unknown]
  - Off label use [Unknown]
